FAERS Safety Report 24982739 (Version 1)
Quarter: 2025Q1

REPORT INFORMATION
  Report Type: Spontaneous
  Country: ES (occurrence: ES)
  Receive Date: 20250218
  Receipt Date: 20250218
  Transmission Date: 20250408
  Serious: Yes (Other)
  Sender: AMGEN
  Company Number: ES-AMGEN-ESPSP2025029013

PATIENT
  Age: 52 Year
  Sex: Male

DRUGS (1)
  1. ETELCALCETIDE [Suspect]
     Active Substance: ETELCALCETIDE
     Indication: Hyperparathyroidism
     Route: 065

REACTIONS (2)
  - Amyloidosis [Unknown]
  - Carpal tunnel syndrome [Unknown]
